FAERS Safety Report 9788694 (Version 3)
Quarter: 2014Q1

REPORT INFORMATION
  Report Type: Spontaneous
  Country: BR (occurrence: BR)
  Receive Date: 20131230
  Receipt Date: 20140108
  Transmission Date: 20141002
  Serious: Yes (Other)
  Sender: FDA-Public Use
  Company Number: BR-PFIZER INC-2013373365

PATIENT
  Sex: Female

DRUGS (2)
  1. TECTA [Suspect]
     Dosage: 1 DF, 2X/DAY
     Route: 048
     Dates: start: 20131212, end: 20131215
  2. MESACOL MMX [Suspect]
     Indication: IRRITABLE BOWEL SYNDROME
     Dosage: UNK
     Route: 065

REACTIONS (3)
  - Haematochezia [Unknown]
  - Dry mouth [Unknown]
  - Headache [Unknown]
